FAERS Safety Report 6751119-1 (Version None)
Quarter: 2010Q2

REPORT INFORMATION
  Report Type: 
  Country: None (occurrence: None)
  Receive Date: 20100526
  Receipt Date: 20100310
  Transmission Date: 20101027
  Serious: No
  Sender: FDA-Public Use
  Company Number: 305791

PATIENT
  Age: 32 Year
  Sex: Female

DRUGS (2)
  1. VICTOZA [Suspect]
     Indication: GLUCOSE TOLERANCE IMPAIRED
     Dosage: SUBCUTANEOUS
     Route: 058
     Dates: start: 20100302
  2. ANTIDEPRESSANTS [Concomitant]

REACTIONS (1)
  - CONSTIPATION [None]
